FAERS Safety Report 25284821 (Version 1)
Quarter: 2025Q2

REPORT INFORMATION
  Report Type: Spontaneous
  Country: US (occurrence: US)
  Receive Date: 20250508
  Receipt Date: 20250508
  Transmission Date: 20250717
  Serious: No
  Sender: NEUROCRINE BIOSCIENCES
  Company Number: US-NEUROCRINE BIOSCIENCES INC.-2025NBI03929

PATIENT

DRUGS (2)
  1. INGREZZA [Suspect]
     Active Substance: VALBENAZINE DITOSYLATE
     Indication: Tardive dyskinesia
     Route: 065
  2. TETRABENAZINE [Concomitant]
     Active Substance: TETRABENAZINE
     Route: 065

REACTIONS (2)
  - Tardive dyskinesia [Unknown]
  - Infection [Unknown]

NARRATIVE: CASE EVENT DATE: 20250101
